FAERS Safety Report 10080637 (Version 1)
Quarter: 2014Q2

REPORT INFORMATION
  Report Type: Spontaneous
  Country: DK (occurrence: None)
  Receive Date: 20140414
  Receipt Date: 20140414
  Transmission Date: 20141212
  Serious: No
  Sender: FDA-Public Use
  Company Number: DK-2014-1164

PATIENT
  Age: 54 Year
  Sex: Female

DRUGS (10)
  1. VINORELBINE INN [Suspect]
     Indication: BREAST CANCER
  2. FEMAR [Suspect]
     Indication: BREAST CANCER
  3. GEMZAR [Suspect]
     Indication: BREAST CANCER
  4. HERCEPTIN [Suspect]
     Indication: BREAST CANCER
  5. LAPATINIB [Suspect]
     Indication: BREAST CANCER
  6. TAMOXIFEN [Suspect]
     Indication: BREAST CANCER
  7. TAXOL [Suspect]
     Indication: BREAST CANCER
  8. XELODA [Suspect]
     Indication: BREAST CANCER
  9. ZOMETA [Suspect]
  10. ERIBULIN [Suspect]
     Indication: BREAST CANCER

REACTIONS (6)
  - Nervous system disorder [None]
  - Pleural effusion [None]
  - Lung infiltration [None]
  - Metastases to bone [None]
  - Malignant neoplasm progression [None]
  - Breast cancer [None]
